FAERS Safety Report 6043575-1 (Version None)
Quarter: 2009Q1

REPORT INFORMATION
  Report Type: 
  Country: None (occurrence: None)
  Receive Date: 20090115
  Receipt Date: 20090115
  Transmission Date: 20090719
  Serious: Yes (Other)
  Sender: FDA-Public Use
  Company Number: None

PATIENT
  Age: 64 Year
  Sex: Female
  Weight: 51.2565 kg

DRUGS (2)
  1. FOSAMAX [Suspect]
     Indication: OSTEOPENIA
     Dosage: WEEKLY PO
     Route: 048
     Dates: start: 20070701, end: 20071201
  2. ARIMIDEX [Concomitant]

REACTIONS (1)
  - OESOPHAGEAL SQUAMOUS CELL CARCINOMA [None]
